FAERS Safety Report 16583813 (Version 1)
Quarter: 2019Q3

REPORT INFORMATION
  Report Type: Spontaneous
  Country: FR (occurrence: FR)
  Receive Date: 20190717
  Receipt Date: 20190717
  Transmission Date: 20191004
  Serious: Yes (Other)
  Sender: FDA-Public Use
  Company Number: FR-TEVA-2019-FR-1077063

PATIENT
  Age: 77 Year
  Sex: Male
  Weight: 68 kg

DRUGS (1)
  1. AMLODIPINE TEVA 10 MG, G?LULE [Suspect]
     Active Substance: AMLODIPINE BESYLATE
     Indication: HYPERTENSION
     Dosage: 10 MILLIGRAM DAILY;
     Route: 048
     Dates: start: 20190523, end: 20190623

REACTIONS (13)
  - Gastrointestinal motility disorder [Recovered/Resolved]
  - Insomnia [Recovered/Resolved]
  - Somnolence [Recovered/Resolved]
  - Disturbance in attention [Recovered/Resolved]
  - Fatigue [Recovered/Resolved]
  - Vision blurred [Recovered/Resolved]
  - Joint swelling [Recovered/Resolved]
  - Weight decreased [Recovered/Resolved]
  - Mood swings [Recovered/Resolved]
  - Deafness unilateral [Recovered/Resolved]
  - Rhinitis [Recovered/Resolved]
  - Myalgia [Recovered/Resolved]
  - Irritability [Recovered/Resolved]

NARRATIVE: CASE EVENT DATE: 20190527
